FAERS Safety Report 18768439 (Version 9)
Quarter: 2021Q3

REPORT INFORMATION
  Report Type: Report from Study
  Country: CO (occurrence: CO)
  Receive Date: 20210121
  Receipt Date: 20210917
  Transmission Date: 20211014
  Serious: Yes (Hospitalization, Other)
  Sender: FDA-Public Use
  Company Number: CO-REGENERON PHARMACEUTICALS, INC.-2021-14533

PATIENT

DRUGS (6)
  1. EYLEA [Suspect]
     Active Substance: AFLIBERCEPT
     Indication: DIABETIC RETINAL OEDEMA
     Dosage: 1 DF, ONCE (BILATERAL)
     Route: 031
     Dates: start: 20200527
  2. EYLEA [Suspect]
     Active Substance: AFLIBERCEPT
     Dosage: 1 DF, ONCE (BILATERAL)
     Route: 031
     Dates: start: 20200625, end: 20200625
  3. EYLEA [Suspect]
     Active Substance: AFLIBERCEPT
     Dosage: 1 DF, ONCE (BILATERAL)
     Route: 031
     Dates: start: 20200930, end: 20200930
  4. EYLEA [Suspect]
     Active Substance: AFLIBERCEPT
     Dosage: 2 MG, ONCE (BILATERAL)
     Route: 031
     Dates: start: 20210519
  5. EYLEA [Suspect]
     Active Substance: AFLIBERCEPT
     Dosage: 1 DF, ONCE (OD)
     Route: 031
     Dates: start: 20200820, end: 20200820
  6. EYLEA [Suspect]
     Active Substance: AFLIBERCEPT
     Dosage: 1 DF, ONCE (BILATERAL)
     Route: 031
     Dates: start: 20201028, end: 20201028

REACTIONS (12)
  - Eye pain [Not Recovered/Not Resolved]
  - Hypertension [Unknown]
  - Blindness unilateral [Not Recovered/Not Resolved]
  - Myocardial infarction [Unknown]
  - Hospitalisation [Unknown]
  - Cataract [Unknown]
  - Eye pain [Not Recovered/Not Resolved]
  - Intraocular lens implant [Unknown]
  - Eye irritation [Not Recovered/Not Resolved]
  - Blindness unilateral [Not Recovered/Not Resolved]
  - Influenza [Not Recovered/Not Resolved]
  - Dialysis [Not Recovered/Not Resolved]

NARRATIVE: CASE EVENT DATE: 20200718
